FAERS Safety Report 12180422 (Version 1)
Quarter: 2016Q1

REPORT INFORMATION
  Report Type: Spontaneous
  Country: US (occurrence: US)
  Receive Date: 20160315
  Receipt Date: 20160315
  Transmission Date: 20160526
  Serious: Yes (Other)
  Sender: FDA-Public Use
  Company Number: PHHY2016US033103

PATIENT
  Age: 50 Year

DRUGS (2)
  1. GILENYA [Suspect]
     Active Substance: FINGOLIMOD HYDROCHLORIDE
     Indication: RELAPSING-REMITTING MULTIPLE SCLEROSIS
     Dosage: 0.5 MG, QD
     Route: 048
  2. PANTOPRAZOLE [Concomitant]
     Active Substance: PANTOPRAZOLE SODIUM
     Indication: PRODUCT USED FOR UNKNOWN INDICATION
     Dosage: 40 MG, QD
     Route: 065

REACTIONS (9)
  - Glioblastoma [Unknown]
  - Amnesia [Unknown]
  - Hypoaesthesia [Unknown]
  - Pyrexia [Unknown]
  - Burning sensation [Unknown]
  - Paraesthesia [Unknown]
  - Lymphopenia [Unknown]
  - Generalised tonic-clonic seizure [Unknown]
  - Cognitive disorder [Unknown]
